FAERS Safety Report 9507159 (Version 1)
Quarter: 2013Q1

REPORT INFORMATION
  Report Type: Spontaneous
  Country: US (occurrence: None)
  Receive Date: 20130301
  Receipt Date: 20130301
  Transmission Date: 20140127
  Serious: Yes (Hospitalization, Other)
  Sender: FDA-Public Use
  Company Number: RB-38979-2012

PATIENT
  Sex: Male

DRUGS (2)
  1. SUBUTEX [Suspect]
     Indication: DRUG DEPENDENCE
     Dosage: 1 MG, UNIT DOSE UNKNOWN TRANSPLACENTAL)
     Route: 064
  2. PNV (??/??/2011 TO UNKNOWN) [Concomitant]

REACTIONS (1)
  - Tremor neonatal [None]
